FAERS Safety Report 23815604 (Version 1)
Quarter: 2024Q2

REPORT INFORMATION
  Report Type: Spontaneous
  Country: US (occurrence: None)
  Receive Date: 20240502
  Receipt Date: 20240502
  Transmission Date: 20240716
  Serious: Yes (Other)
  Sender: FDA-Public Use
  Company Number: None

PATIENT
  Age: 79 Year
  Sex: Female

DRUGS (12)
  1. LEQVIO [Suspect]
     Active Substance: INCLISIRAN SODIUM
     Indication: Hypercholesterolaemia
     Dosage: 1.5 ML  Q 3 MONTHS X 2 SUBCUTANEOUS ?
     Route: 058
     Dates: start: 20240208
  2. AMLODIPINE [Concomitant]
     Active Substance: AMLODIPINE BESYLATE
  3. ISOSORBIDE MONONITRATE 120MG ER [Concomitant]
  4. TRIAMTERENE 100MG [Concomitant]
  5. VICTOZA [Concomitant]
     Active Substance: LIRAGLUTIDE
  6. ASPIRIN 81MG CHEWABLE [Concomitant]
  7. ALLOPURINOL [Concomitant]
     Active Substance: ALLOPURINOL
  8. FERROUS SULFATE [Concomitant]
     Active Substance: FERROUS SULFATE
  9. VITAMINS [Concomitant]
     Active Substance: VITAMINS
  10. NITROGLYCERIN 0.4MG [Concomitant]
  11. SENSIPAR [Concomitant]
     Active Substance: CINACALCET HYDROCHLORIDE
  12. VITAMIN D3 1000IU [Concomitant]

REACTIONS (3)
  - Diabetes mellitus inadequate control [None]
  - Blood glucose increased [None]
  - Therapy non-responder [None]

NARRATIVE: CASE EVENT DATE: 20240208
